FAERS Safety Report 18553417 (Version 1)
Quarter: 2020Q4

REPORT INFORMATION
  Report Type: Spontaneous
  Country: US (occurrence: US)
  Receive Date: 20201127
  Receipt Date: 20201127
  Transmission Date: 20210114
  Serious: No
  Sender: FDA-Public Use
  Company Number: US-ELI_LILLY_AND_COMPANY-US202011000550

PATIENT
  Sex: Female

DRUGS (1)
  1. EMGALITY [Suspect]
     Active Substance: GALCANEZUMAB-GNLM
     Indication: MIGRAINE
     Dosage: 120 MG, UNKNOWN
     Route: 058

REACTIONS (5)
  - Tinnitus [Recovered/Resolved]
  - Migraine [Unknown]
  - Flushing [Recovered/Resolved]
  - Underdose [Unknown]
  - Feeling hot [Recovered/Resolved]
